FAERS Safety Report 17077882 (Version 1)
Quarter: 2019Q4

REPORT INFORMATION
  Report Type: Spontaneous
  Country: DE (occurrence: DE)
  Receive Date: 20191126
  Receipt Date: 20191126
  Transmission Date: 20200122
  Serious: Yes (Life-Threatening, Hospitalization)
  Sender: FDA-Public Use
  Company Number: NVSC2019DE047615

PATIENT
  Age: 16 Year
  Sex: Female
  Weight: 63 kg

DRUGS (1)
  1. PARACETAMOL [Suspect]
     Active Substance: ACETAMINOPHEN
     Indication: DEPRESSION
     Dosage: 7500 MG, TOTAL 15 SEPARATED DOSES
     Route: 048
     Dates: start: 20190623, end: 20190623

REACTIONS (2)
  - Toxicity to various agents [Unknown]
  - Suicidal ideation [Unknown]

NARRATIVE: CASE EVENT DATE: 20190623
